FAERS Safety Report 8483793 (Version 5)
Quarter: 2012Q4

REPORT INFORMATION
  Report Type: 
  Country: US (occurrence: US)
  Receive Date: 20120329
  Receipt Date: 20121019
  Transmission Date: 20130627
  Serious: Yes (Hospitalization, Disabling, Other)
  Sender: FDA-Public Use
  Company Number: US-009507513-0202USA02118

PATIENT

DRUGS (10)
  1. FOSAMAX [Suspect]
     Indication: OSTEOPOROSIS
     Dosage: 10 mg, qd
     Route: 048
     Dates: start: 1996, end: 200310
  2. FOSAMAX [Suspect]
     Dosage: 70 mg, QW
     Route: 048
     Dates: start: 20030707, end: 20040413
  3. FOSAMAX [Suspect]
     Dosage: UNK
     Route: 048
     Dates: end: 200810
  4. PRINZIDE [Concomitant]
  5. SYNTHROID [Concomitant]
     Indication: HYPOTHYROIDISM
     Route: 048
     Dates: start: 19960101
  6. PREMPRO [Concomitant]
     Indication: MENOPAUSAL SYMPTOMS
     Dates: start: 1997
  7. LEVOTHROID [Concomitant]
  8. CYCRIN [Concomitant]
  9. ESTRADERM [Concomitant]
  10. OGEN [Concomitant]

REACTIONS (36)
  - Femur fracture [Unknown]
  - Femur fracture [Unknown]
  - Intramedullary rod insertion [Unknown]
  - Bone density decreased [Unknown]
  - Abdominal pain upper [Not Recovered/Not Resolved]
  - Decreased appetite [Not Recovered/Not Resolved]
  - Arthralgia [Not Recovered/Not Resolved]
  - Myalgia [Not Recovered/Not Resolved]
  - Osteoporosis [Unknown]
  - Stress fracture [Unknown]
  - Low turnover osteopathy [Unknown]
  - Oropharyngeal pain [Unknown]
  - Alopecia [Recovered/Resolved with Sequelae]
  - Tooth disorder [Unknown]
  - Oral disorder [Unknown]
  - Calcium deficiency [Unknown]
  - Vitamin D deficiency [Unknown]
  - Hypertension [Unknown]
  - Drug screen positive [Unknown]
  - Thrombocytopenia [Unknown]
  - Haemorrhagic anaemia [Unknown]
  - Spinal osteoarthritis [Unknown]
  - Facet joint syndrome [Unknown]
  - Nausea [Unknown]
  - Decreased appetite [Unknown]
  - Somnolence [Unknown]
  - Drug ineffective [Unknown]
  - Pruritus [Unknown]
  - Hypocalcaemia [Unknown]
  - Dyspepsia [Unknown]
  - Fall [Unknown]
  - Contusion [Unknown]
  - Contusion [Unknown]
  - Contusion [Unknown]
  - Bursitis [Unknown]
  - Anxiety [None]
